FAERS Safety Report 4323212-4 (Version None)
Quarter: 2004Q1

REPORT INFORMATION
  Report Type: 
  Country: None (occurrence: None)
  Receive Date: 20040324
  Receipt Date: 20040324
  Transmission Date: 20041129
  Serious: Yes (Death)
  Sender: FDA-Public Use
  Company Number: None

PATIENT
  Age: 55 Year
  Sex: Female
  Weight: 40.8237 kg

DRUGS (2)
  1. ZOLOFT [Suspect]
     Indication: ANXIETY
     Dates: start: 19950401, end: 19990809
  2. ZOLOFT [Suspect]
     Indication: DEPRESSION
     Dates: start: 19950401, end: 19990809

REACTIONS (2)
  - COMPLETED SUICIDE [None]
  - INSOMNIA [None]
